FAERS Safety Report 9973598 (Version 1)
Quarter: 2014Q1

REPORT INFORMATION
  Report Type: Spontaneous
  Country: US (occurrence: None)
  Receive Date: 20140218
  Receipt Date: 20140218
  Transmission Date: 20141002
  Serious: Yes (Other)
  Sender: FDA-Public Use
  Company Number: OMPQ-PR-1309S-1169

PATIENT
  Age: 34 Year
  Sex: Female

DRUGS (1)
  1. OMNIPAQUE [Suspect]
     Indication: PRODUCT USED FOR UNKNOWN INDICATION
     Dates: start: 20130911, end: 20130911

REACTIONS (5)
  - Swelling [None]
  - Pruritus [None]
  - Urticaria [None]
  - Nasal congestion [None]
  - Rash [None]
